FAERS Safety Report 8539592-X (Version None)
Quarter: 2012Q3

REPORT INFORMATION
  Report Type: 
  Country: None (occurrence: None)
  Receive Date: 20120726
  Receipt Date: 20120713
  Transmission Date: 20120928
  Serious: Yes (Hospitalization, Other)
  Sender: FDA-Public Use
  Company Number: FR-ELI_LILLY_AND_COMPANY-FR201111006700

PATIENT
  Sex: Male
  Weight: 91 kg

DRUGS (7)
  1. CLOPIDOGREL [Concomitant]
  2. PROZAC [Suspect]
     Indication: DEPRESSION
     Dosage: 1 DF, QD
     Route: 048
     Dates: end: 19960101
  3. BIGUANIDE [Concomitant]
  4. HMG COA REDUCTASE INHIBITORS [Concomitant]
  5. BETA BLOCKING AGENTS [Concomitant]
  6. CALCIUM CHANNEL BLOCKERS [Concomitant]
  7. MEDIATOR [Concomitant]
     Indication: OVERWEIGHT
     Dosage: 450 MG, QD
     Dates: start: 20090301, end: 20091130

REACTIONS (6)
  - DILATATION ATRIAL [None]
  - MITRAL VALVE INCOMPETENCE [None]
  - LEFT VENTRICULAR DYSFUNCTION [None]
  - AORTIC VALVE INCOMPETENCE [None]
  - DILATATION VENTRICULAR [None]
  - ACUTE CORONARY SYNDROME [None]
